FAERS Safety Report 9254012 (Version 1)
Quarter: 2013Q2

REPORT INFORMATION
  Report Type: Spontaneous
  Country: US (occurrence: None)
  Receive Date: 20130422
  Receipt Date: 20130422
  Transmission Date: 20140414
  Serious: Yes (Life-Threatening)
  Sender: FDA-Public Use
  Company Number: None

PATIENT
  Age: 82 Year
  Sex: Female
  Weight: 63.14 kg

DRUGS (4)
  1. CETUXIMAB [Suspect]
     Indication: TONSIL CANCER METASTATIC
     Dates: start: 20130417
  2. DECADRON [Concomitant]
  3. DIPHENHYDRAMINE [Concomitant]
  4. ZANTAC [Concomitant]

REACTIONS (4)
  - Flushing [None]
  - Dyspnoea [None]
  - Chest discomfort [None]
  - Infusion related reaction [None]
